FAERS Safety Report 12828634 (Version 1)
Quarter: 2016Q4

REPORT INFORMATION
  Report Type: Spontaneous
  Country: US (occurrence: US)
  Receive Date: 20161007
  Receipt Date: 20161007
  Transmission Date: 20170207
  Serious: No
  Sender: FDA-Public Use
  Company Number: US-SA-2015SA208108

PATIENT
  Age: 60 Year
  Sex: Female

DRUGS (4)
  1. AUBAGIO [Suspect]
     Active Substance: TERIFLUNOMIDE
     Indication: MULTIPLE SCLEROSIS
     Route: 048
     Dates: start: 201511
  2. PROCARDIA [Concomitant]
     Active Substance: NIFEDIPINE
  3. VITAMIN D [Concomitant]
     Active Substance: CHOLECALCIFEROL
  4. LISINOPRIL. [Concomitant]
     Active Substance: LISINOPRIL

REACTIONS (12)
  - Anhedonia [Unknown]
  - Dysphagia [Unknown]
  - Nausea [Unknown]
  - Weight decreased [Unknown]
  - Sensory loss [Unknown]
  - Pain [Unknown]
  - Depression [Unknown]
  - Depressed mood [Unknown]
  - Crying [Unknown]
  - Speech disorder [Unknown]
  - Hypoacusis [Unknown]
  - Feeling of despair [Unknown]
